FAERS Safety Report 7251112-9 (Version None)
Quarter: 2011Q1

REPORT INFORMATION
  Report Type: 
  Country: None (occurrence: None)
  Receive Date: 20110128
  Receipt Date: 20110124
  Transmission Date: 20110831
  Serious: Yes (Life-Threatening, Hospitalization, Other)
  Sender: FDA-Public Use
  Company Number: PT-PFIZER INC-2011016355

PATIENT
  Age: 40 Year
  Sex: Female

DRUGS (8)
  1. CELECOXIB [Suspect]
     Indication: SCIATICA
     Dosage: 200 MG, 2X/DAY
     Route: 048
     Dates: start: 20110101, end: 20110101
  2. LYRICA [Suspect]
     Indication: SCIATICA
     Dosage: 75 MG, 2X/DAY
     Route: 048
     Dates: start: 20110101, end: 20110101
  3. RELMUS [Suspect]
     Indication: SCIATICA
     Dosage: UNK
     Dates: start: 20110101, end: 20110124
  4. CELECOXIB [Suspect]
     Dosage: 200 MG, 1X/DAY
     Route: 048
     Dates: start: 20110101, end: 20110124
  5. LYRICA [Suspect]
     Dosage: UNK
     Route: 048
     Dates: start: 20110101, end: 20110124
  6. BECLOTAIDE [Concomitant]
     Indication: BRONCHOSPASM
     Dosage: UNK
     Dates: start: 20110121, end: 20110124
  7. ATROVENT [Suspect]
     Indication: BRONCHOSPASM
     Dosage: UNK
     Dates: start: 20110121, end: 20110124
  8. OMEPRAZOLE [Concomitant]
     Indication: PROPHYLAXIS AGAINST GASTROINTESTINAL ULCER
     Dosage: UNK
     Dates: start: 20110107

REACTIONS (11)
  - RASH ERYTHEMATOUS [None]
  - DIZZINESS [None]
  - BRONCHOSPASM [None]
  - DYSPNOEA [None]
  - TACHYCARDIA [None]
  - RASH GENERALISED [None]
  - PRURITUS [None]
  - PYREXIA [None]
  - TACHYPNOEA [None]
  - VOMITING [None]
  - GENERALISED OEDEMA [None]
